FAERS Safety Report 8512546-5 (Version None)
Quarter: 2012Q3

REPORT INFORMATION
  Report Type: 
  Country: None (occurrence: None)
  Receive Date: 20120716
  Receipt Date: 20120704
  Transmission Date: 20120928
  Serious: Yes (Other)
  Sender: FDA-Public Use
  Company Number: FR-ROCHE-1084450

PATIENT
  Sex: Male
  Weight: 67 kg

DRUGS (2)
  1. NILOTINIB HYDROCHLORIDE [Suspect]
     Indication: CHRONIC MYELOID LEUKAEMIA
     Route: 048
     Dates: start: 20110719
  2. PEGASYS [Suspect]
     Indication: CHRONIC MYELOID LEUKAEMIA
     Route: 058
     Dates: start: 20111128

REACTIONS (1)
  - CYTOLYTIC HEPATITIS [None]
